FAERS Safety Report 5409143-7 (Version None)
Quarter: 2007Q3

REPORT INFORMATION
  Report Type: 
  Country: None (occurrence: None)
  Receive Date: 20070713
  Receipt Date: 20070516
  Transmission Date: 20080115
  Serious: Yes (Hospitalization)
  Sender: FDA-Public Use
  Company Number: US-JNJFOC-20061205262

PATIENT
  Age: 31 Year
  Sex: Female
  Weight: 54.4 kg

DRUGS (5)
  1. ORTHO EVRA [Suspect]
     Indication: CONTRACEPTION
     Dosage: 1 DOSE(S), 3 IN 4 WEEK, TRANSDERMAL
     Route: 062
     Dates: start: 20041201, end: 20050710
  2. PREDNISONE (PREDNISONE) UNSPECIFIED [Concomitant]
  3. NEURONTIN (GABAPENTIN) UNSPECIFIED [Concomitant]
  4. PROTONIX (PANTOPRAZOLE) UNSPECIFIED [Concomitant]
  5. TYLENOL #3 (PANADEINE CO) UNSPECIFIED [Concomitant]

REACTIONS (1)
  - VENOUS THROMBOSIS [None]
